FAERS Safety Report 6235782-X (Version None)
Quarter: 2009Q2

REPORT INFORMATION
  Report Type: 
  Country: None (occurrence: None)
  Receive Date: 20090619
  Receipt Date: 20090608
  Transmission Date: 20091009
  Serious: Yes (Congenital Anomaly, Other)
  Sender: FDA-Public Use
  Company Number: US-PFIZER INC-2007095308

PATIENT
  Sex: Male

DRUGS (4)
  1. ZOLOFT [Suspect]
     Route: 064
     Dates: start: 19990101
  2. LORTAB [Concomitant]
  3. PROZAC [Concomitant]
  4. PAXIL [Concomitant]

REACTIONS (21)
  - ARTHROPATHY [None]
  - ATRIAL SEPTAL DEFECT [None]
  - CARDIAC MURMUR [None]
  - COMPLEMENT FACTOR C4 DECREASED [None]
  - CYANOSIS [None]
  - DEVELOPMENTAL DELAY [None]
  - DIZZINESS [None]
  - DRUG EXPOSURE DURING PREGNANCY [None]
  - DYSPEPSIA [None]
  - EAR INFECTION [None]
  - HEADACHE [None]
  - HYPERTENSION [None]
  - MYOCLONIC EPILEPSY [None]
  - PALPITATIONS [None]
  - PULMONARY VALVE STENOSIS [None]
  - SINGLE FUNCTIONAL KIDNEY [None]
  - SLEEP APNOEA SYNDROME [None]
  - SYNCOPE [None]
  - THALASSAEMIA [None]
  - TONSILLAR HYPERTROPHY [None]
  - URINARY TRACT INFECTION [None]
